FAERS Safety Report 6943269-1 (Version None)
Quarter: 2010Q3

REPORT INFORMATION
  Report Type: 
  Country: None (occurrence: None)
  Receive Date: 20100826
  Receipt Date: 20100819
  Transmission Date: 20110219
  Serious: Yes (Death, Hospitalization)
  Sender: FDA-Public Use
  Company Number: US-TEVA-245468USA

PATIENT
  Sex: Male

DRUGS (2)
  1. COPAXONE [Suspect]
     Indication: MULTIPLE SCLEROSIS
     Route: 058
     Dates: start: 20070101, end: 20080323
  2. REFIB [Suspect]
     Indication: MULTIPLE SCLEROSIS
     Dosage: 44 MCG THREE TIMES PER WEEK
     Route: 058
     Dates: start: 20051014, end: 20070101

REACTIONS (1)
  - GLIOBLASTOMA MULTIFORME [None]
